FAERS Safety Report 21935334 (Version 2)
Quarter: 2023Q1

REPORT INFORMATION
  Report Type: Spontaneous
  Country: CA (occurrence: CA)
  Receive Date: 20230201
  Receipt Date: 20230309
  Transmission Date: 20230417
  Serious: No
  Sender: FDA-Public Use
  Company Number: CA-PFIZER INC-202300037992

PATIENT
  Age: 28 Year
  Sex: Female

DRUGS (1)
  1. DEPO-PROVERA [Suspect]
     Active Substance: MEDROXYPROGESTERONE ACETATE
     Dosage: UNK
     Route: 030

REACTIONS (2)
  - Incorrect dose administered by device [Unknown]
  - Needle issue [Unknown]
